FAERS Safety Report 16115098 (Version 1)
Quarter: 2019Q1

REPORT INFORMATION
  Report Type: Spontaneous
  Country: US (occurrence: US)
  Receive Date: 20190325
  Receipt Date: 20190325
  Transmission Date: 20190418
  Serious: No
  Sender: FDA-Public Use
  Company Number: US-SMITH AND NEPHEW, INC-2018SMT00102

PATIENT
  Age: 77 Year
  Sex: Male
  Weight: 64.4 kg

DRUGS (11)
  1. RANEXA [Concomitant]
     Active Substance: RANOLAZINE
     Dosage: 500 MG
  2. HUMALOG [Concomitant]
     Active Substance: INSULIN LISPRO
  3. ISOSORBIDE. [Concomitant]
     Active Substance: ISOSORBIDE
     Dosage: 30 MG
  4. ATORVASTATIN [Concomitant]
     Active Substance: ATORVASTATIN
     Dosage: 40 MG
  5. LEVOTHYROXINE. [Concomitant]
     Active Substance: LEVOTHYROXINE
     Dosage: 25 ?G
  6. METOPROLOL. [Concomitant]
     Active Substance: METOPROLOL
     Dosage: 50 MG
  7. ASPIRIN. [Concomitant]
     Active Substance: ASPIRIN
     Dosage: 81 MG
  8. LANTUS [Concomitant]
     Active Substance: INSULIN GLARGINE
     Dosage: 12 DOSAGE UNITS
  9. LISINOPRIL. [Concomitant]
     Active Substance: LISINOPRIL
     Dosage: 5 MG
  10. COLLAGENASE SANTYL [Suspect]
     Active Substance: COLLAGENASE CLOSTRIDIUM HISTOLYTICUM
     Indication: DIABETIC ULCER
     Route: 061
     Dates: start: 201805
  11. BRILINTA [Concomitant]
     Active Substance: TICAGRELOR
     Dosage: 90 MG

REACTIONS (2)
  - Wound complication [Not Recovered/Not Resolved]
  - Drug ineffective [Not Recovered/Not Resolved]

NARRATIVE: CASE EVENT DATE: 2018
